FAERS Safety Report 7440344-2 (Version None)
Quarter: 2011Q2

REPORT INFORMATION
  Report Type: 
  Country: None (occurrence: None)
  Receive Date: 20110427
  Receipt Date: 20110426
  Transmission Date: 20111010
  Serious: Yes (Other)
  Sender: FDA-Public Use
  Company Number: IT-MERCK-1104ITA00040

PATIENT
  Age: 86 Year
  Sex: Female

DRUGS (5)
  1. AMANTADINE HYDROCHLORIDE [Suspect]
     Route: 048
     Dates: start: 20110209, end: 20110213
  2. SINEMET [Suspect]
     Route: 048
     Dates: start: 20100214, end: 20110213
  3. AMANTADINE HYDROCHLORIDE [Suspect]
     Route: 048
     Dates: start: 20110131, end: 20110208
  4. PRAMIPEXOLE DIHYDROCHLORIDE [Suspect]
     Route: 048
     Dates: start: 20100214, end: 20110213
  5. GLICLAZIDE [Concomitant]
     Route: 065
     Dates: start: 20100214, end: 20110213

REACTIONS (2)
  - DYSSTASIA [None]
  - HALLUCINATIONS, MIXED [None]
